FAERS Safety Report 13153441 (Version 1)
Quarter: 2017Q1

REPORT INFORMATION
  Report Type: Report from Study
  Country: TW (occurrence: TW)
  Receive Date: 20170126
  Receipt Date: 20170126
  Transmission Date: 20170428
  Serious: Yes (Hospitalization)
  Sender: FDA-Public Use
  Company Number: TW-ROCHE-1871114

PATIENT
  Age: 55 Year
  Sex: Male

DRUGS (1)
  1. MABTHERA [Suspect]
     Active Substance: RITUXIMAB
     Indication: NON-HODGKIN^S LYMPHOMA
     Route: 042

REACTIONS (4)
  - Chills [Recovered/Resolved]
  - Loss of consciousness [Recovered/Resolved]
  - Drug hypersensitivity [Recovered/Resolved]
  - Asthma [Recovered/Resolved]
